FAERS Safety Report 5252877-8 (Version None)
Quarter: 2007Q1

REPORT INFORMATION
  Report Type: 
  Country: None (occurrence: None)
  Receive Date: 20070227
  Receipt Date: 20070212
  Transmission Date: 20070707
  Serious: Yes (Hospitalization)
  Sender: FDA-Public Use
  Company Number: 2007000342

PATIENT
  Age: 84 Year
  Sex: Female

DRUGS (4)
  1. MACUGEN [Suspect]
     Indication: MACULAR DEGENERATION
     Dosage: 0.3 MG (06WKS), INTRA-VITREAL
     Dates: start: 20061213
  2. LATANOPROST [Concomitant]
  3. ZOTAC [Concomitant]
  4. VITEYES [Concomitant]

REACTIONS (5)
  - FALL [None]
  - PAIN [None]
  - UVEITIS [None]
  - VISION BLURRED [None]
  - VITRITIS [None]
